FAERS Safety Report 20557029 (Version 4)
Quarter: 2022Q3

REPORT INFORMATION
  Report Type: Spontaneous
  Country: US (occurrence: US)
  Receive Date: 20220307
  Receipt Date: 20220816
  Transmission Date: 20221027
  Serious: Yes (Other)
  Sender: FDA-Public Use
  Company Number: US-SA-SAC20220303001335

PATIENT
  Sex: Female

DRUGS (1)
  1. DUPIXENT [Suspect]
     Active Substance: DUPILUMAB
     Indication: Asthma
     Dosage: 300 MG, QOW
     Route: 058
     Dates: start: 20220110

REACTIONS (7)
  - Cataract [Unknown]
  - Vision blurred [Unknown]
  - Astigmatism [Unknown]
  - Weight increased [Unknown]
  - Lacrimation increased [Unknown]
  - Product use in unapproved indication [Unknown]
  - Dry eye [Unknown]
